FAERS Safety Report 5598491-6 (Version None)
Quarter: 2008Q1

REPORT INFORMATION
  Report Type: 
  Country: None (occurrence: None)
  Receive Date: 20080122
  Receipt Date: 20080114
  Transmission Date: 20080703
  Serious: Yes (Other)
  Sender: FDA-Public Use
  Company Number: DK-ABBOTT-07P-044-0430205-00

PATIENT
  Sex: Male
  Weight: 92 kg

DRUGS (1)
  1. SEVORANE LIQUID FOR INHALATION [Suspect]
     Indication: DRUG USE FOR UNKNOWN INDICATION
     Route: 055
     Dates: start: 20061025, end: 20061026

REACTIONS (3)
  - HAEMOPTYSIS [None]
  - HYPOXIA [None]
  - LUNG INFILTRATION [None]
